FAERS Safety Report 9540290 (Version 1)
Quarter: 2013Q2

REPORT INFORMATION
  Report Type: Spontaneous
  Country: GB (occurrence: None)
  Receive Date: 20130529
  Receipt Date: 20130529
  Transmission Date: 20140414
  Serious: Yes (Other)
  Sender: FDA-Public Use
  Company Number: EUS-2012-00791

PATIENT
  Sex: 0

DRUGS (1)
  1. QUADRAMET [Suspect]
     Indication: METASTATIC PAIN
     Dosage: 294+/545- MBQ

REACTIONS (1)
  - Thrombocytopenia [None]
